FAERS Safety Report 9723104 (Version 1)
Quarter: 2013Q4

REPORT INFORMATION
  Report Type: Spontaneous
  Country: US (occurrence: US)
  Receive Date: 20131202
  Receipt Date: 20131202
  Transmission Date: 20140711
  Serious: Yes (Hospitalization, Other)
  Sender: FDA-Public Use
  Company Number: US-B.I. PHARMACEUTICALS,INC./RIDGEFIELD-2013-BI-39341BP

PATIENT
  Age: 73 Year
  Sex: Male

DRUGS (1)
  1. SPIRIVA [Suspect]
     Route: 055
     Dates: start: 201204

REACTIONS (2)
  - Myocardial infarction [Recovered/Resolved]
  - Dyspnoea [Unknown]
